FAERS Safety Report 5614501-1 (Version None)
Quarter: 2008Q1

REPORT INFORMATION
  Report Type: 
  Country: None (occurrence: None)
  Receive Date: 20080205
  Receipt Date: 20080131
  Transmission Date: 20080703
  Serious: Yes (Life-Threatening, Disabling, Other)
  Sender: FDA-Public Use
  Company Number: US-MERCK-0502USA02163

PATIENT
  Age: 62 Year
  Sex: Male

DRUGS (5)
  1. ZOCOR [Suspect]
     Indication: BLOOD CHOLESTEROL INCREASED
     Route: 048
     Dates: start: 19970407
  2. OXYCODONE [Concomitant]
     Route: 065
  3. PROPRANOLOL HYDROCHLORIDE [Concomitant]
     Route: 065
  4. FENFLURAMINE HYDROCHLORIDE AND PHENTERMINE [Concomitant]
     Route: 065
  5. [THERAPY UNSPECIFIED] [Concomitant]
     Route: 065

REACTIONS (13)
  - AMNESIA [None]
  - ASTHENIA [None]
  - DYSGEUSIA [None]
  - HYPERTENSION [None]
  - HYPOAESTHESIA [None]
  - MUSCULAR WEAKNESS [None]
  - MUSCULOSKELETAL DISCOMFORT [None]
  - MUSCULOSKELETAL DISORDER [None]
  - MYOCARDIAL INFARCTION [None]
  - MYOPATHY [None]
  - NEUROPATHY PERIPHERAL [None]
  - RENAL FAILURE ACUTE [None]
  - VERTIGO [None]
